FAERS Safety Report 5363386-X (Version None)
Quarter: 2007Q2

REPORT INFORMATION
  Report Type: 
  Country: None (occurrence: None)
  Receive Date: 20070620
  Receipt Date: 20070619
  Transmission Date: 20071010
  Serious: Yes (Hospitalization)
  Sender: FDA-Public Use
  Company Number: FR-BRISTOL-MYERS SQUIBB COMPANY-13809736

PATIENT
  Age: 84 Year
  Sex: Female
  Weight: 36 kg

DRUGS (7)
  1. COUMADIN [Suspect]
     Route: 048
  2. LORAZEPAM [Suspect]
     Route: 048
  3. ATHYMIL [Suspect]
     Route: 048
  4. AMLOR [Suspect]
     Route: 048
  5. LAMICTAL [Suspect]
     Route: 048
  6. TAHOR [Suspect]
     Route: 048
  7. OMEPRAZOLE [Suspect]

REACTIONS (1)
  - HEPATIC ENZYME INCREASED [None]
